FAERS Safety Report 20160828 (Version 1)
Quarter: 2021Q4

REPORT INFORMATION
  Report Type: Spontaneous
  Country: US (occurrence: US)
  Receive Date: 20211208
  Receipt Date: 20211208
  Transmission Date: 20220303
  Serious: Yes (Other)
  Sender: FDA-Public Use
  Company Number: US-CROWNLABS-2021-US-025200

PATIENT
  Age: 26 Year
  Sex: Female
  Weight: 50.8 kg

DRUGS (1)
  1. PANOXYL ACNE FOAMING WASH [Suspect]
     Active Substance: BENZOYL PEROXIDE
     Indication: Therapeutic skin care topical
     Dosage: APPLIED TO FACE AND NECK ONE TIME
     Route: 061
     Dates: start: 20210921, end: 20210921

REACTIONS (5)
  - Application site irritation [Not Recovered/Not Resolved]
  - Application site warmth [Not Recovered/Not Resolved]
  - Impaired work ability [Not Recovered/Not Resolved]
  - Application site erythema [Not Recovered/Not Resolved]
  - Adverse drug reaction [Not Recovered/Not Resolved]

NARRATIVE: CASE EVENT DATE: 20210921
